FAERS Safety Report 7103999-8 (Version None)
Quarter: 2010Q4

REPORT INFORMATION
  Report Type: 
  Country: None (occurrence: None)
  Receive Date: 20101115
  Receipt Date: 20100510
  Transmission Date: 20110411
  Serious: No
  Sender: FDA-Public Use
  Company Number: US-ALLERGAN-1006201US

PATIENT

DRUGS (2)
  1. BOTOXA? [Suspect]
     Indication: SKIN WRINKLING
  2. TRAZODONE [Concomitant]
     Indication: INSOMNIA

REACTIONS (3)
  - APHONIA [None]
  - FACIAL PARESIS [None]
  - PERIORBITAL OEDEMA [None]
